FAERS Safety Report 14304111 (Version 1)
Quarter: 2017Q4

REPORT INFORMATION
  Report Type: Spontaneous
  Country: DE (occurrence: DE)
  Receive Date: 20171219
  Receipt Date: 20171219
  Transmission Date: 20180321
  Serious: Yes (Death, Other)
  Sender: FDA-Public Use
  Company Number: DE-OTSUKA-DJ20120006

PATIENT
  Age: 71 Year
  Sex: Female

DRUGS (8)
  1. SOLIAN [Concomitant]
     Active Substance: AMISULPRIDE
     Indication: PRODUCT USED FOR UNKNOWN INDICATION
     Dosage: UNK
     Route: 065
  2. QUILONUM [Suspect]
     Active Substance: LITHIUM CARBONATE
     Indication: BIPOLAR I DISORDER
  3. DOMINAL (ACETYLSALICYLIC ACID) [Suspect]
     Active Substance: ASPIRIN
     Indication: MANIA
     Dosage: UNK
     Route: 065
     Dates: start: 20110524
  4. ABILIFY [Suspect]
     Active Substance: ARIPIPRAZOLE
     Indication: MANIA
     Dosage: 5 MG, UNK
     Route: 065
     Dates: start: 20110524
  5. HALDOL [Suspect]
     Active Substance: HALOPERIDOL
     Indication: BIPOLAR I DISORDER
  6. QUILONUM [Suspect]
     Active Substance: LITHIUM CARBONATE
     Indication: MANIA
     Dosage: UNK
     Route: 065
  7. HALDOL [Suspect]
     Active Substance: HALOPERIDOL
     Indication: MANIA
     Dosage: 10 MG, UNK
     Route: 065
  8. TAVOR (LORAZEPAM) [Concomitant]
     Active Substance: LORAZEPAM
     Indication: PRODUCT USED FOR UNKNOWN INDICATION
     Dosage: UNK
     Route: 065

REACTIONS (10)
  - Seizure [Unknown]
  - Coma [Fatal]
  - Gait inability [Fatal]
  - Death [Fatal]
  - Status epilepticus [Fatal]
  - Oedema [Fatal]
  - Speech disorder [Fatal]
  - Eating disorder [Fatal]
  - Somnolence [Fatal]
  - Dehydration [Fatal]

NARRATIVE: CASE EVENT DATE: 2011
